FAERS Safety Report 8220006-4 (Version None)
Quarter: 2012Q1

REPORT INFORMATION
  Report Type: 
  Country: None (occurrence: None)
  Receive Date: 20120319
  Receipt Date: 20120305
  Transmission Date: 20120608
  Serious: Yes (Hospitalization)
  Sender: FDA-Public Use
  Company Number: DE-RANBAXY-2012RR-54061

PATIENT
  Age: 37 Year
  Sex: Female
  Weight: 79 kg

DRUGS (1)
  1. CEFPODOXIME PROXETIL [Suspect]
     Indication: BRONCHITIS
     Dosage: 200 MG, BID
     Route: 048
     Dates: start: 20111128, end: 20111130

REACTIONS (1)
  - PANCREATITIS ACUTE [None]
